FAERS Safety Report 4604454-7 (Version None)
Quarter: 2005Q2

REPORT INFORMATION
  Report Type: 
  Country: None (occurrence: None)
  Receive Date: 20050215
  Receipt Date: 20041026
  Transmission Date: 20051028
  Serious: Yes (Hospitalization)
  Sender: FDA-Public Use
  Company Number: 371321

PATIENT
  Age: 55 Year
  Sex: Male

DRUGS (3)
  1. PEGASYS [Suspect]
     Indication: HEPATITIS C
     Dosage: 180 MCG 1 PER WEEK
     Dates: start: 20040315
  2. COPEGUS [Suspect]
     Indication: HEPATITIS C
     Dosage: 200 MG  4 PER DAY
     Dates: start: 20040315
  3. MVI (MULTIVITAMIN NOS) [Concomitant]

REACTIONS (5)
  - ANAEMIA [None]
  - PLATELET COUNT DECREASED [None]
  - URINARY TRACT INFECTION [None]
  - UROSEPSIS [None]
  - WHITE BLOOD CELL COUNT DECREASED [None]
